FAERS Safety Report 6686311-8 (Version None)
Quarter: 2010Q2

REPORT INFORMATION
  Report Type: 
  Country: None (occurrence: None)
  Receive Date: 20100419
  Receipt Date: 20100407
  Transmission Date: 20101027
  Serious: Yes (Other)
  Sender: FDA-Public Use
  Company Number: JP-PFIZER INC-2010045220

PATIENT
  Age: 35 Year
  Sex: Female

DRUGS (3)
  1. ZOLOFT [Suspect]
     Indication: PANIC ATTACK
     Dosage: UNK
     Route: 048
  2. CONSTAN [Concomitant]
     Route: 048
  3. DEPAS [Concomitant]
     Route: 048

REACTIONS (3)
  - ACTIVITIES OF DAILY LIVING IMPAIRED [None]
  - DRUG EFFECT DECREASED [None]
  - MUSCLE RIGIDITY [None]
